FAERS Safety Report 5572009-6 (Version None)
Quarter: 2007Q4

REPORT INFORMATION
  Report Type: 
  Country: None (occurrence: None)
  Receive Date: 20071221
  Receipt Date: 20071127
  Transmission Date: 20080405
  Serious: No
  Sender: FDA-Public Use
  Company Number: US-BOEHRINGER INGELHEIM PHARMACEUTICALS, INC.-2007-BP-25260BP

PATIENT
  Sex: Female

DRUGS (7)
  1. MIRAPEX [Suspect]
     Indication: RESTLESS LEGS SYNDROME
     Route: 048
     Dates: start: 20050101
  2. CLORAZEPATE [Concomitant]
     Indication: ANXIETY
  3. HYDROCODONE BITARTRATE [Concomitant]
     Indication: MUSCULOSKELETAL PAIN
  4. METOCLOPRAMIDE [Concomitant]
  5. OMEPRAZOLE [Concomitant]
  6. BESICARE [Concomitant]
     Indication: URINARY INCONTINENCE
  7. ALBUTEROL [Concomitant]
     Indication: CHRONIC OBSTRUCTIVE PULMONARY DISEASE

REACTIONS (1)
  - THERAPEUTIC RESPONSE DECREASED [None]
